FAERS Safety Report 8323327-X (Version None)
Quarter: 2012Q2

REPORT INFORMATION
  Report Type: 
  Country: None (occurrence: None)
  Receive Date: 20120430
  Receipt Date: 20120424
  Transmission Date: 20120825
  Serious: No
  Sender: FDA-Public Use
  Company Number: US-PFIZER INC-2012101604

PATIENT
  Sex: Female

DRUGS (7)
  1. VIMPAT [Concomitant]
     Dosage: UNK
  2. LEVOXYL [Concomitant]
     Dosage: UNK
  3. REMERON [Concomitant]
     Dosage: UNK
  4. TRAZODONE [Concomitant]
     Dosage: UNK
  5. NUEDEXTA [Suspect]
     Dosage: 20/10 MG
  6. ATIVAN [Concomitant]
     Dosage: UNK
  7. XANAX [Suspect]
     Indication: SLEEP DISORDER
     Dosage: UNK

REACTIONS (7)
  - DYSPNOEA EXERTIONAL [None]
  - CRYING [None]
  - DYSGRAPHIA [None]
  - DRUG INEFFECTIVE [None]
  - TREMOR [None]
  - FRUSTRATION [None]
  - MOOD SWINGS [None]
